FAERS Safety Report 6297226-1 (Version None)
Quarter: 2009Q3

REPORT INFORMATION
  Report Type: 
  Country: None (occurrence: None)
  Receive Date: 20090805
  Receipt Date: 20090731
  Transmission Date: 20100115
  Serious: Yes (Other)
  Sender: FDA-Public Use
  Company Number: GB-TEVA-204330ISR

PATIENT
  Age: 41 Year
  Sex: Male

DRUGS (4)
  1. CISPLATIN [Suspect]
     Indication: METASTATIC MALIGNANT MELANOMA
  2. CISPLATIN [Concomitant]
  3. DACARBAZINE [Suspect]
     Indication: METASTATIC MALIGNANT MELANOMA
  4. INTERFERON ALFA [Suspect]
     Indication: METASTATIC MALIGNANT MELANOMA

REACTIONS (1)
  - TUMOUR LYSIS SYNDROME [None]
